FAERS Safety Report 16745644 (Version 1)
Quarter: 2019Q3

REPORT INFORMATION
  Report Type: Report from Study
  Country: US (occurrence: ZA)
  Receive Date: 20190827
  Receipt Date: 20190827
  Transmission Date: 20191005
  Serious: Yes (Other)
  Sender: FDA-Public Use
  Company Number: ZA-STI PHARMA LLC-2073705

PATIENT
  Age: 33 Year

DRUGS (12)
  1. ETHAMBUTOL HYDROCHLORIDE. [Suspect]
     Active Substance: ETHAMBUTOL HYDROCHLORIDE
     Indication: TUBERCULOSIS
     Route: 048
     Dates: start: 20190214, end: 20190718
  2. SULFAMETHOXAZOLE AND TRIMETHOPRIM [Suspect]
     Active Substance: SULFAMETHOXAZOLE\TRIMETHOPRIM
  3. LINEZOLID. [Suspect]
     Active Substance: LINEZOLID
     Dates: start: 20190214, end: 20190718
  4. LEVOFLOXACIN. [Suspect]
     Active Substance: LEVOFLOXACIN
     Route: 048
     Dates: start: 20190214, end: 20190718
  5. PYRAZINAMIDE. [Suspect]
     Active Substance: PYRAZINAMIDE
     Route: 048
     Dates: start: 20190214, end: 20190718
  6. DELAMINID [Suspect]
     Active Substance: DELAMANID
     Route: 048
     Dates: start: 20190527, end: 20190718
  7. EMTRICITABINE W/TENOFOVIR [Suspect]
     Active Substance: EMTRICITABINE\TENOFOVIR DISOPROXIL
  8. RALTEGRAVIR. [Suspect]
     Active Substance: RALTEGRAVIR
  9. CLOFAZIMINE [Suspect]
     Active Substance: CLOFAZIMINE
     Route: 048
     Dates: start: 20190214, end: 20190718
  10. BEDAQUILINE [Suspect]
     Active Substance: BEDAQUILINE
     Dates: start: 20190214, end: 20190718
  11. PASER [Suspect]
     Active Substance: AMINOSALICYLIC ACID
     Dates: start: 20190406, end: 20190718
  12. TERIZIDONE [Suspect]
     Active Substance: TERIZIDONE
     Dates: start: 20190406, end: 20190718

REACTIONS (1)
  - Vomiting [Recovered/Resolved]

NARRATIVE: CASE EVENT DATE: 20190718
